FAERS Safety Report 4755405-6 (Version None)
Quarter: 2005Q3

REPORT INFORMATION
  Report Type: 
  Country: None (occurrence: None)
  Receive Date: 20050826
  Receipt Date: 20050209
  Transmission Date: 20060218
  Serious: Yes (Other)
  Sender: FDA-Public Use
  Company Number: USA-2003-0006694

PATIENT
  Age: 37 Year
  Sex: Male
  Weight: 83.9 kg

DRUGS (7)
  1. OXYCONTIN [Suspect]
     Indication: PAIN
     Dosage: 80 MG, BID
     Dates: start: 20011101
  2. OXYCODONE HCL CR TABLETS (SIMILAR TO NDA 20-553) [Concomitant]
  3. OXYIR CAPSULES 5 MG [Concomitant]
  4. TRAZODONE [Concomitant]
  5. LIDODERM [Concomitant]
  6. ELAVIL [Concomitant]
  7. WELLBUTRIN [Concomitant]

REACTIONS (28)
  - ANXIETY [None]
  - BACK PAIN [None]
  - CHILLS [None]
  - COLD SWEAT [None]
  - COUGH [None]
  - DEPRESSION [None]
  - DISTURBANCE IN ATTENTION [None]
  - DIZZINESS [None]
  - DRUG DEPENDENCE [None]
  - DRUG WITHDRAWAL SYNDROME [None]
  - DYSPNOEA [None]
  - DYSURIA [None]
  - HERPES SIMPLEX [None]
  - HYPOAESTHESIA [None]
  - INADEQUATE ANALGESIA [None]
  - INSOMNIA [None]
  - MEMORY IMPAIRMENT [None]
  - MOOD SWINGS [None]
  - NAUSEA [None]
  - PAIN [None]
  - PAIN IN EXTREMITY [None]
  - PARAESTHESIA [None]
  - PRURITUS [None]
  - SEXUAL DYSFUNCTION [None]
  - SINUS BRADYCARDIA [None]
  - SOMNOLENCE [None]
  - VOMITING [None]
  - WHEEZING [None]
